FAERS Safety Report 8377916-7 (Version None)
Quarter: 2012Q2

REPORT INFORMATION
  Report Type: 
  Country: None (occurrence: None)
  Receive Date: 20120522
  Receipt Date: 20120508
  Transmission Date: 20120825
  Serious: Yes (Hospitalization, Other)
  Sender: FDA-Public Use
  Company Number: US-ELI_LILLY_AND_COMPANY-USA030742644

PATIENT
  Sex: Female
  Weight: 100 kg

DRUGS (4)
  1. CODEINE SULFATE [Concomitant]
     Indication: TOOTHACHE
     Dosage: UNK, UNKNOWN
     Dates: start: 20020715, end: 20020728
  2. PRENATAL VITAMINS                  /01549301/ [Concomitant]
  3. PROZAC [Suspect]
     Indication: DEPRESSION
     Dosage: 40 MG, UNKNOWN
     Dates: start: 19950101, end: 20020801
  4. PROZAC [Suspect]
     Dosage: 20 MG, QD

REACTIONS (10)
  - ANXIETY [None]
  - MATERNAL EXPOSURE DURING PREGNANCY [None]
  - INSOMNIA [None]
  - SCREAMING [None]
  - IMPRISONMENT [None]
  - BIPOLAR I DISORDER [None]
  - MANIA [None]
  - PHYSICAL ASSAULT [None]
  - ABORTION MISSED [None]
  - ABNORMAL BEHAVIOUR [None]
